FAERS Safety Report 26160285 (Version 2)
Quarter: 2025Q4

REPORT INFORMATION
  Report Type: Report from Study
  Country: US (occurrence: US)
  Receive Date: 20251216
  Receipt Date: 20251216
  Transmission Date: 20260117
  Serious: No
  Sender: SANDOZ
  Company Number: US-SANDOZ-SDZ2025US094471

PATIENT
  Age: 39 Year
  Sex: Male

DRUGS (6)
  1. HYRIMOZ [Suspect]
     Active Substance: ADALIMUMAB-ADAZ
     Dosage: 40 MG, Q2W, 40 MG SOLUTION FOR INJECTION IN PRE-FILLED PEN
     Route: 065
  2. HYRIMOZ [Suspect]
     Active Substance: ADALIMUMAB-ADAZ
     Dosage: 40 MG, Q2W, 40 MG SOLUTION FOR INJECTION IN PRE-FILLED PEN
     Route: 065
  3. HYRIMOZ [Suspect]
     Active Substance: ADALIMUMAB-ADAZ
     Indication: Psoriasis
     Dosage: 0.4 ML, Q2W (HYRIMOZ 40MG/0.4ML SC EVERY 2 WEEKS
     Route: 058
     Dates: start: 202412
  4. HYRIMOZ [Suspect]
     Active Substance: ADALIMUMAB-ADAZ
     Indication: Psoriasis
     Dosage: 0.4 ML, Q2W (HYRIMOZ 40MG/0.4ML SC EVERY 2 WEEKS
     Route: 058
     Dates: start: 202412
  5. HYRIMOZ [Suspect]
     Active Substance: ADALIMUMAB-ADAZ
     Dosage: 0.4 ML, Q2W HYRIMOZ 40MG/0.4ML SC EVERY 2 WEEKS
     Route: 058
     Dates: start: 20251204
  6. HYRIMOZ [Suspect]
     Active Substance: ADALIMUMAB-ADAZ
     Dosage: 0.4 ML, Q2W HYRIMOZ 40MG/0.4ML SC EVERY 2 WEEKS
     Route: 058
     Dates: start: 20251204

REACTIONS (4)
  - Injection site paraesthesia [Unknown]
  - Injection site pain [Unknown]
  - Lack of injection site rotation [Unknown]
  - Pain in extremity [Unknown]

NARRATIVE: CASE EVENT DATE: 20251204
